FAERS Safety Report 13207643 (Version 1)
Quarter: 2017Q1

REPORT INFORMATION
  Report Type: Spontaneous
  Country: US (occurrence: US)
  Receive Date: 20170209
  Receipt Date: 20170209
  Transmission Date: 20170428
  Serious: No
  Sender: FDA-Public Use
  Company Number: None

PATIENT
  Age: 77 Year
  Sex: Female

DRUGS (2)
  1. IMATINIB MESYLATE 400MG NOVARTIS [Suspect]
     Active Substance: IMATINIB MESYLATE
     Indication: CHRONIC MYELOID LEUKAEMIA
     Route: 048
     Dates: start: 200302, end: 201702
  2. IMATINIB MESYLATE 200MG NOVARTIS [Suspect]
     Active Substance: IMATINIB MESYLATE
     Indication: CHRONIC MYELOID LEUKAEMIA
     Route: 048
     Dates: start: 201702

REACTIONS (2)
  - Therapy change [None]
  - Fluid retention [None]

NARRATIVE: CASE EVENT DATE: 20170107
